FAERS Safety Report 5266907-0 (Version None)
Quarter: 2007Q1

REPORT INFORMATION
  Report Type: 
  Country: None (occurrence: None)
  Receive Date: 20070316
  Receipt Date: 20070305
  Transmission Date: 20070707
  Serious: Yes (Death, Hospitalization)
  Sender: FDA-Public Use
  Company Number: AU-NOVOPROD-261320

PATIENT
  Age: 81 Year
  Sex: Male
  Weight: 65 kg

DRUGS (5)
  1. NOVOSEVEN [Suspect]
     Indication: HAEMORRHAGE
     Dosage: 6 MG, SINGLE
     Route: 042
     Dates: start: 20061017
  2. PROTAMINE SULFATE [Concomitant]
     Dates: start: 20061017
  3. HEPARIN [Concomitant]
     Dates: start: 20061016
  4. GLUCONAT DE CALCIUM [Concomitant]
  5. ASPIRIN [Concomitant]
     Dates: start: 20061016

REACTIONS (2)
  - ARTERIAL THROMBOSIS [None]
  - MULTI-ORGAN FAILURE [None]
